FAERS Safety Report 7507249-X (Version None)
Quarter: 2011Q2

REPORT INFORMATION
  Report Type: 
  Country: None (occurrence: None)
  Receive Date: 20110526
  Receipt Date: 20110513
  Transmission Date: 20111010
  Serious: Yes (Hospitalization)
  Sender: FDA-Public Use
  Company Number: PHHY2011FR41421

PATIENT
  Sex: Female

DRUGS (8)
  1. PANTOPRAZOLE SODIUM [Concomitant]
     Dosage: 1 DF, QD
  2. ACETAMINOPHEN AND TRAMADOL HCL [Concomitant]
     Dosage: 1 TO 3 DF, DAILY
  3. CHONDROSULF [Concomitant]
     Dosage: 400 MG, TID
  4. VALSARTAN  AND HYDROCHLOROTHIAZIDE [Suspect]
     Dosage: 80 MG VALS AND 12.5 MG HCT, ONCE DAILY
     Route: 048
     Dates: end: 20110208
  5. ZOLPIDEM [Concomitant]
     Dosage: 5 MG, QD
  6. PAROXETINE HCL [Concomitant]
     Dosage: 20 MG, QD
  7. LEVOTHYROXINE SODIUM [Concomitant]
     Dosage: 75 UG, QD
  8. KETOPROFEN [Concomitant]
     Dosage: 100 MG, UNK

REACTIONS (9)
  - HYPONATRAEMIA [None]
  - HYPOKALAEMIA [None]
  - ANGIOMYOLIPOMA [None]
  - RENAL DISORDER [None]
  - DEHYDRATION [None]
  - RENAL CYST [None]
  - DIVERTICULUM [None]
  - PROTEIN TOTAL INCREASED [None]
  - CONSTIPATION [None]
